FAERS Safety Report 11511300 (Version 4)
Quarter: 2015Q4

REPORT INFORMATION
  Report Type: Spontaneous
  Country: US (occurrence: US)
  Receive Date: 20150915
  Receipt Date: 20151125
  Transmission Date: 20160304
  Serious: No
  Sender: FDA-Public Use
  Company Number: US-009507513-1509USA006941

PATIENT
  Age: 30 Year
  Sex: Female
  Weight: 61.22 kg

DRUGS (2)
  1. FOLLISTIM [Suspect]
     Active Substance: FOLLITROPIN
     Indication: IN VITRO FERTILISATION
     Dosage: 300 DF, QD
     Route: 058
     Dates: start: 20150703, end: 20150708
  2. FOLLISTIM [Suspect]
     Active Substance: FOLLITROPIN
     Dosage: 450 DF, QD
     Dates: end: 201508

REACTIONS (1)
  - Drug effect incomplete [Recovered/Resolved]

NARRATIVE: CASE EVENT DATE: 20150703
